FAERS Safety Report 7150793 (Version 6)
Quarter: 2013Q2

REPORT INFORMATION
  Report Type: Report from Study
  Country: JP (occurrence: JP)
  Receive Date: 20091016
  Receipt Date: 20130611
  Transmission Date: 20140414
  Serious: Yes (Death, Life-Threatening, Hospitalization)
  Sender: FDA-Public Use
  Company Number: JP-BRISTOL-MYERS SQUIBB COMPANY-14810964

PATIENT
  Age: 70 Year
  Sex: Female
  Weight: 42.6 kg

DRUGS (7)
  1. SPRYCEL [Suspect]
     Indication: ACUTE LYMPHOCYTIC LEUKAEMIA
     Route: 048
     Dates: start: 20091002, end: 20091006
  2. IMATINIB MESILATE [Suspect]
     Indication: ACUTE LYMPHOCYTIC LEUKAEMIA
     Dosage: 1 DF = 200-600 MG?FORMULATION - TABLET
     Route: 048
     Dates: start: 200704, end: 200909
  3. ONCOVIN [Concomitant]
     Indication: ACUTE LYMPHOCYTIC LEUKAEMIA
     Dosage: INJECTION
     Route: 042
     Dates: start: 20091003, end: 20091003
  4. GABEXATE MESYLATE [Concomitant]
     Dosage: INJECTION
     Route: 042
     Dates: start: 20091004, end: 20091009
  5. PREDNISOLONE SODIUM SUCCINATE [Concomitant]
     Indication: ACUTE LYMPHOCYTIC LEUKAEMIA
     Dosage: INJECTION;30MG/DAY(07OCT09-09OCT09)
     Route: 042
     Dates: start: 20091002, end: 20091006
  6. OMEPRAZOLE [Concomitant]
     Dosage: INJECTION
     Route: 042
     Dates: start: 20091003, end: 20091009
  7. MICAFUNGIN SODIUM [Concomitant]
     Dosage: INJECTION
     Route: 042
     Dates: start: 20091008, end: 20091009

REACTIONS (7)
  - Gastrointestinal haemorrhage [Fatal]
  - Pneumonia [Fatal]
  - Disseminated intravascular coagulation [Fatal]
  - White blood cell count decreased [Not Recovered/Not Resolved]
  - Neutrophil count decreased [Not Recovered/Not Resolved]
  - Platelet count decreased [Not Recovered/Not Resolved]
  - Anaemia [Not Recovered/Not Resolved]
